FAERS Safety Report 19025474 (Version 1)
Quarter: 2021Q1

REPORT INFORMATION
  Report Type: Spontaneous
  Country: US (occurrence: US)
  Receive Date: 20210316
  Receipt Date: 20210316
  Transmission Date: 20210420
  Serious: Yes (Hospitalization)
  Sender: FDA-Public Use
  Company Number: None

PATIENT
  Age: 77 Year
  Sex: Male
  Weight: 95.71 kg

DRUGS (2)
  1. DEXAMETHASONE (DEXAMETHASONE 4MG TAB) [Suspect]
     Active Substance: DEXAMETHASONE
     Route: 048
     Dates: start: 20180718
  2. NAPROXEN (NAPROXEN NA 220MG TAB) [Suspect]
     Active Substance: NAPROXEN
     Indication: PAIN
     Route: 048
     Dates: start: 20181105, end: 20181107

REACTIONS (1)
  - Acute kidney injury [None]

NARRATIVE: CASE EVENT DATE: 20181107
